FAERS Safety Report 12180447 (Version 3)
Quarter: 2016Q1

REPORT INFORMATION
  Report Type: Spontaneous
  Country: US (occurrence: US)
  Receive Date: 20160315
  Receipt Date: 20160329
  Transmission Date: 20160526
  Serious: Yes (Other)
  Sender: FDA-Public Use
  Company Number: US-UNITED THERAPEUTICS-UNT-2016-002461

PATIENT
  Age: 55 Year
  Sex: Male
  Weight: 94.33 kg

DRUGS (1)
  1. REMODULIN [Suspect]
     Active Substance: TREPROSTINIL
     Indication: PULMONARY HYPERTENSION
     Dosage: 0.001 ?G/KG, CONTINUING
     Route: 058
     Dates: start: 20160209

REACTIONS (13)
  - Vomiting [Unknown]
  - Infusion site pain [Unknown]
  - Decreased appetite [Unknown]
  - Headache [Recovered/Resolved]
  - Liver injury [Unknown]
  - Weight decreased [Unknown]
  - Flushing [Unknown]
  - Varices oesophageal [Unknown]
  - Hypersomnia [Unknown]
  - Diarrhoea [Unknown]
  - Nausea [Unknown]
  - Pain in jaw [Unknown]
  - Dry mouth [Unknown]

NARRATIVE: CASE EVENT DATE: 201602
